FAERS Safety Report 6618422-7 (Version None)
Quarter: 2010Q1

REPORT INFORMATION
  Report Type: 
  Country: None (occurrence: None)
  Receive Date: 20100308
  Receipt Date: 20100226
  Transmission Date: 20100710
  Serious: Yes (Hospitalization)
  Sender: FDA-Public Use
  Company Number: B0637833A

PATIENT
  Sex: Female

DRUGS (10)
  1. ALKERAN [Suspect]
     Indication: CHEMOTHERAPY
     Dosage: 140MG PER DAY
     Route: 042
     Dates: start: 20090818, end: 20090818
  2. ATENOLOL [Concomitant]
     Dosage: 50MG PER DAY
     Route: 048
  3. KEPIVANCE [Concomitant]
     Dosage: 2500MG PER DAY
     Route: 042
     Dates: start: 20090814, end: 20090821
  4. ZEFFIX [Concomitant]
     Dosage: 100MG PER DAY
     Route: 048
  5. NORVASC [Concomitant]
     Dosage: 20MG PER DAY
     Route: 048
  6. ALLOPURINOL [Concomitant]
     Dosage: 100MG PER DAY
     Route: 048
  7. ROCALTROL [Concomitant]
     Dosage: .25MCG PER DAY
     Route: 048
  8. SPORANOX [Concomitant]
     Dosage: 40ML PER DAY
     Route: 048
     Dates: start: 20090821, end: 20090825
  9. LEVOXACIN [Concomitant]
     Dosage: 500MG PER DAY
     Route: 048
     Dates: start: 20090821, end: 20090825
  10. ZOVIRAX [Concomitant]
     Dosage: 100MG PER DAY
     Route: 065
     Dates: start: 20090822, end: 20090825

REACTIONS (2)
  - MUCOSAL INFLAMMATION [None]
  - OESOPHAGEAL CANDIDIASIS [None]
